FAERS Safety Report 17280316 (Version 2)
Quarter: 2020Q1

REPORT INFORMATION
  Report Type: Report from Study
  Country: US (occurrence: US)
  Receive Date: 20200117
  Receipt Date: 20200123
  Transmission Date: 20200409
  Serious: Yes (Hospitalization, Other)
  Sender: FDA-Public Use
  Company Number: US-ROCHE-2517389

PATIENT
  Age: 54 Year
  Sex: Female
  Weight: 87.4 kg

DRUGS (3)
  1. ATEZOLIZUMAB. [Suspect]
     Active Substance: ATEZOLIZUMAB
     Indication: MALIGNANT PERITONEAL NEOPLASM
     Dosage: 800 MG IV OVER 1 HOUR ON DAYS 1 AND 15?TOTAL DOSE ADMINISTERED THIS COURSE 8000 MG?LAST DOSE ADMINIS
     Route: 042
     Dates: start: 20190226
  2. LIPOSOMAL DOXORUBICIN HYDROCHLORIDE [Suspect]
     Active Substance: DOXORUBICIN HYDROCHLORIDE
     Indication: MALIGNANT PERITONEAL NEOPLASM
     Dosage: TOTAL DOSE ADMINISTERED THIS COURSE  456 MG?LAST ADMINISTERED DATE 16/JUL/2019.?OVER 1 HOUR ON DAY 1
     Route: 042
     Dates: start: 20190226
  3. BEVACIZUMAB. [Suspect]
     Active Substance: BEVACIZUMAB
     Indication: MALIGNANT PERITONEAL NEOPLASM
     Dosage: 10 MG/KG IV OVER 90 MINUTES ON DAYS 1 AND 15?TOTAL DOSE ADMINISTERED THIS COURSE 9250 MG?LAST ADMINI
     Route: 042
     Dates: start: 20191226

REACTIONS (5)
  - Blood bilirubin increased [Not Recovered/Not Resolved]
  - Alanine aminotransferase increased [Not Recovered/Not Resolved]
  - Autoimmune disorder [Not Recovered/Not Resolved]
  - Aspartate aminotransferase increased [Not Recovered/Not Resolved]
  - Blood alkaline phosphatase increased [Not Recovered/Not Resolved]

NARRATIVE: CASE EVENT DATE: 20190812
